FAERS Safety Report 9512188 (Version 1)
Quarter: 2013Q1

REPORT INFORMATION
  Report Type: Spontaneous
  Country: US (occurrence: None)
  Receive Date: 20130305
  Receipt Date: 20130305
  Transmission Date: 20140127
  Serious: Yes (Other)
  Sender: FDA-Public Use
  Company Number: 163-21880-12092461

PATIENT
  Age: 65 Year
  Sex: Female

DRUGS (17)
  1. REVLIMID (LENALIDOMIDE) (15 MILLIGRAM, CAPSULES) [Suspect]
     Indication: PLASMA CELL MYELOMA
     Dosage: 15 MG, 21 IN 28 D, PO
     Route: 048
     Dates: start: 20120227, end: 20121011
  2. STOOL SOFTENER (DOCUSATE SODIUM) (UNKNOWN) [Concomitant]
  3. FENTANYHL (FENTANYL) (UNKNOWN) [Concomitant]
  4. AMLODIPINE (AMLODIPINE) (UNKNOWN) [Concomitant]
  5. LIPITOR (ATORVASTATIN) (UNKNOWN) [Concomitant]
  6. METFORMIN (METFORMIN) (UNKNOWN) [Concomitant]
  7. METOCLOPRAMIDE (METOCLOPRAMIDE) (UNKNOWN) [Concomitant]
  8. MILK OF MAGNESIA (MAGNESIUM HYDROXIDE) (UNKNOWN) [Concomitant]
  9. ZOFRAN (ONDANSETRON HYDROCHLORIDE) (UNKNOWN) [Concomitant]
  10. MULTIVITAMINS (MULTIVITAMINS) (UNKNOWN) [Concomitant]
  11. MAGNESIUM OXIDE (MAGNESIUM OXIDE) (UNKNOWN) [Concomitant]
  12. OXYCODONE (OXYCODONE) (UNKNOWN) (OXYCODONE) [Concomitant]
  13. CALCIUM +D (OS-CAL) (UNKNOWN) [Concomitant]
  14. ASPIRIN (ACETYLSALICYLIC ACID) (UNKNOWN) (ACETYLSALICYLIC ACID) [Concomitant]
  15. RENAL CAPSULES (RENALTABS) (CAPSULES) [Concomitant]
  16. VELCADE [Concomitant]
  17. DEXAMETHASONE (DEXAMETHASONE) (UNKNOWN) [Concomitant]

REACTIONS (5)
  - Drug dose omission [None]
  - Rash maculo-papular [None]
  - Pruritus [None]
  - Pruritus [None]
  - Rash [None]
